FAERS Safety Report 10077239 (Version 2)
Quarter: 2014Q2

REPORT INFORMATION
  Report Type: Spontaneous
  Country: US (occurrence: US)
  Receive Date: 20140414
  Receipt Date: 20140414
  Transmission Date: 20141212
  Serious: No
  Sender: FDA-Public Use
  Company Number: US-BANPHARM-20131089

PATIENT
  Age: 57 Year
  Sex: Male

DRUGS (1)
  1. NAPROXEN SODIUM 220 MG [Suspect]
     Indication: ARTHRALGIA
     Dosage: 440 MG QD
     Route: 048
     Dates: start: 201302

REACTIONS (1)
  - Drug screen false positive [Unknown]
